FAERS Safety Report 13279553 (Version 1)
Quarter: 2017Q1

REPORT INFORMATION
  Report Type: Spontaneous
  Country: FR (occurrence: FR)
  Receive Date: 20170228
  Receipt Date: 20170228
  Transmission Date: 20170428
  Serious: Yes (Hospitalization, Other)
  Sender: FDA-Public Use
  Company Number: FR-BRISTOL-MYERS SQUIBB COMPANY-BMS-2017-014814

PATIENT
  Age: 88 Year
  Sex: Female

DRUGS (5)
  1. COUMADINE [Interacting]
     Active Substance: WARFARIN SODIUM
     Indication: PRODUCT USED FOR UNKNOWN INDICATION
     Dosage: UNK
     Route: 065
     Dates: start: 20161228, end: 20170113
  2. PYOSTACINE [Interacting]
     Active Substance: PRISTINAMYCIN
     Indication: BRONCHITIS
     Dosage: UNK
     Route: 048
     Dates: start: 20161223, end: 20161226
  3. SOTALOL. [Concomitant]
     Active Substance: SOTALOL
     Indication: PRODUCT USED FOR UNKNOWN INDICATION
     Dosage: 80 MG, QD
     Route: 065
  4. COUMADINE [Suspect]
     Active Substance: WARFARIN SODIUM
     Indication: ATRIAL FIBRILLATION
     Dosage: UNK
     Route: 065
     Dates: end: 20161226
  5. SOLUPRED                           /00016201/ [Interacting]
     Active Substance: PREDNISOLONE
     Indication: BRONCHITIS
     Dosage: 60 MG, QD
     Route: 048
     Dates: start: 20161223, end: 20161226

REACTIONS (6)
  - Shock haemorrhagic [Recovered/Resolved]
  - Transfusion [Recovered/Resolved]
  - Overdose [Recovered/Resolved]
  - Acute kidney injury [Recovered/Resolved]
  - Gastrointestinal haemorrhage [Recovered/Resolved]
  - Labelled drug-drug interaction medication error [Recovered/Resolved]

NARRATIVE: CASE EVENT DATE: 20161226
